FAERS Safety Report 20681852 (Version 1)
Quarter: 2022Q2

REPORT INFORMATION
  Report Type: Spontaneous
  Country: US (occurrence: US)
  Receive Date: 20220407
  Receipt Date: 20220407
  Transmission Date: 20220720
  Serious: No
  Sender: FDA-Public Use
  Company Number: US-ViiV Healthcare Limited-77772

PATIENT
  Age: 37 Year
  Sex: Male

DRUGS (1)
  1. DOVATO [Suspect]
     Active Substance: DOLUTEGRAVIR SODIUM\LAMIVUDINE
     Indication: Product used for unknown indication
     Dosage: 1 DF, QD,  50/300
     Route: 048

REACTIONS (4)
  - Myalgia [Unknown]
  - Bone pain [Unknown]
  - Nausea [Unknown]
  - Abdominal discomfort [Unknown]
